FAERS Safety Report 11364204 (Version 2)
Quarter: 2015Q3

REPORT INFORMATION
  Report Type: Report from Study
  Country: SV (occurrence: SV)
  Receive Date: 20150811
  Receipt Date: 20150820
  Transmission Date: 20151125
  Serious: Yes (Death, Other)
  Sender: FDA-Public Use
  Company Number: PHHY2015SV096594

PATIENT
  Age: 50 Year
  Sex: Female
  Weight: 42.63 kg

DRUGS (1)
  1. GLIVEC [Suspect]
     Active Substance: IMATINIB MESYLATE
     Indication: CHRONIC MYELOID LEUKAEMIA
     Dosage: 400 MG, QD
     Route: 065
     Dates: start: 20150226

REACTIONS (6)
  - Malignant neoplasm progression [Fatal]
  - Chronic myeloid leukaemia [Fatal]
  - Febrile neutropenia [Unknown]
  - Thrombocytopenia [Unknown]
  - Blast crisis in myelogenous leukaemia [Unknown]
  - Sepsis [Fatal]

NARRATIVE: CASE EVENT DATE: 20150620
